FAERS Safety Report 17882986 (Version 1)
Quarter: 2020Q2

REPORT INFORMATION
  Report Type: Report from Study
  Country: None (occurrence: US)
  Receive Date: 20200610
  Receipt Date: 20200610
  Transmission Date: 20200714
  Serious: Yes (Hospitalization, Other)
  Sender: FDA-Public Use
  Company Number: US-ABBVIE-20K-163-3394042-00

PATIENT
  Age: 61 Year
  Sex: Female

DRUGS (2)
  1. HUMIRA [Suspect]
     Active Substance: ADALIMUMAB
     Indication: PSORIASIS
     Route: 058
     Dates: end: 20200509
  2. HUMIRA [Suspect]
     Active Substance: ADALIMUMAB
     Indication: PSORIATIC ARTHROPATHY

REACTIONS (8)
  - Fall [Unknown]
  - Exostosis [Unknown]
  - Contusion [Unknown]
  - Skin injury [Unknown]
  - Injection site pain [Unknown]
  - Arthralgia [Unknown]
  - Skin disorder [Unknown]
  - Back pain [Unknown]

NARRATIVE: CASE EVENT DATE: 20200524
